FAERS Safety Report 18374577 (Version 4)
Quarter: 2021Q2

REPORT INFORMATION
  Report Type: Spontaneous
  Country: US (occurrence: US)
  Receive Date: 20201012
  Receipt Date: 20210402
  Transmission Date: 20210717
  Serious: Yes (Hospitalization, Disabling, Other)
  Sender: FDA-Public Use
  Company Number: US-BAUSCH-BL-2020-029204

PATIENT
  Age: 69 Year
  Sex: Female
  Weight: 79.45 kg

DRUGS (1)
  1. WELLBUTRIN XL [Suspect]
     Active Substance: BUPROPION HYDROCHLORIDE
     Indication: DEPRESSION
     Dosage: THE PATIENT TOOK PRODUCT FOR ABOUT SIX MONTHS
     Route: 048
     Dates: start: 201603, end: 2016

REACTIONS (7)
  - Cerebrovascular accident [Not Recovered/Not Resolved]
  - Amnesia [Recovered/Resolved]
  - Blood glucose increased [Recovered/Resolved]
  - Thrombosis [Recovered/Resolved]
  - Drug ineffective [Unknown]
  - Impaired driving ability [Recovered/Resolved]
  - Gait inability [Recovered/Resolved]

NARRATIVE: CASE EVENT DATE: 201609
